FAERS Safety Report 5982131-8 (Version None)
Quarter: 2008Q4

REPORT INFORMATION
  Report Type: 
  Country: None (occurrence: None)
  Receive Date: 20081202
  Receipt Date: 20081117
  Transmission Date: 20090506
  Serious: Yes (Life-Threatening)
  Sender: FDA-Public Use
  Company Number: DSA_32736_2008

PATIENT
  Age: 78 Year
  Sex: Female

DRUGS (4)
  1. ENALAPRIL MALEATE [Suspect]
     Indication: HYPERTENSION
     Dosage: 20 MG QD ORAL
     Route: 048
     Dates: end: 20080530
  2. FLUINDIONE (FLUINDIONE) [Suspect]
     Dosage: DF ORAL
     Route: 048
     Dates: end: 20080530
  3. ROSUVASTATIN CALCIUM [Suspect]
     Indication: DYSLIPIDAEMIA
     Dosage: 20 MG QD ORAL
     Route: 048
     Dates: start: 20080415, end: 20080530
  4. FUROSEMIDE [Concomitant]

REACTIONS (11)
  - AGITATION [None]
  - CONFUSIONAL STATE [None]
  - DELIRIUM [None]
  - DYSLIPIDAEMIA [None]
  - HAEMODIALYSIS [None]
  - HYPOTHYROIDISM [None]
  - INTERNATIONAL NORMALISED RATIO INCREASED [None]
  - NERVOUS SYSTEM DISORDER [None]
  - PHLEBITIS [None]
  - RENAL FAILURE ACUTE [None]
  - RESPIRATORY FAILURE [None]
